FAERS Safety Report 15802105 (Version 1)
Quarter: 2019Q1

REPORT INFORMATION
  Report Type: Other
  Country: ES (occurrence: ES)
  Receive Date: 20190109
  Receipt Date: 20190109
  Transmission Date: 20190417
  Serious: Yes (Other)
  Sender: FDA-Public Use
  Company Number: ES-APOTEX-2019AP005035

PATIENT
  Age: 27 Year
  Sex: Male

DRUGS (3)
  1. VENLAFAXINE [Suspect]
     Active Substance: VENLAFAXINE HYDROCHLORIDE
     Indication: PRODUCT USED FOR UNKNOWN INDICATION
     Dosage: UNK
     Route: 065
  2. QUETIAPINE. [Interacting]
     Active Substance: QUETIAPINE
     Indication: PRODUCT USED FOR UNKNOWN INDICATION
     Dosage: 200 MG, QD
     Route: 065
  3. VALPROIC ACID. [Interacting]
     Active Substance: VALPROIC ACID
     Indication: PRODUCT USED FOR UNKNOWN INDICATION
     Dosage: 250 MG, QD
     Route: 065

REACTIONS (4)
  - Blood creatine phosphokinase increased [Recovered/Resolved]
  - Rhabdomyolysis [Recovered/Resolved]
  - Drug interaction [Unknown]
  - Myalgia [Recovered/Resolved]
